FAERS Safety Report 4283806-1 (Version None)
Quarter: 2004Q1

REPORT INFORMATION
  Report Type: 
  Country: None (occurrence: None)
  Receive Date: 20040130
  Receipt Date: 20040116
  Transmission Date: 20041129
  Serious: Yes (Other)
  Sender: FDA-Public Use
  Company Number: US-JNJFOC-20040103278

PATIENT
  Age: 69 Year
  Sex: Male

DRUGS (5)
  1. INFLIXIMAB (INFLIXIMAB, RECOMBINANT) LYOPHILIZED POWDER [Suspect]
     Indication: RHEUMATOID ARTHRITIS
     Dosage: INTRAVENOUS
     Route: 042
     Dates: start: 20020118, end: 20020227
  2. ENBREL [Concomitant]
  3. PREDNISONE [Concomitant]
  4. VITAMIN C (ASCORBIC ACID) [Concomitant]
  5. MULTIVITAMIN (MULTIVITAMINS) [Concomitant]

REACTIONS (1)
  - BASAL CELL CARCINOMA [None]
